FAERS Safety Report 9661127 (Version 1)
Quarter: 2013Q4

REPORT INFORMATION
  Report Type: Spontaneous
  Country: GB (occurrence: None)
  Receive Date: 20131030
  Receipt Date: 20131030
  Transmission Date: 20140711
  Serious: Yes (Life-Threatening, Hospitalization, Other)
  Sender: FDA-Public Use
  Company Number: AUR-APL-2013-08858

PATIENT
  Age: 45 Year
  Sex: Male

DRUGS (2)
  1. RISPERIDONE [Suspect]
     Indication: PSYCHOTIC DISORDER
  2. RISPERIDAL [Suspect]
     Indication: PSYCHOTIC DISORDER
     Dosage: 50MG, 1 IN 2 WK, UNKNOWN

REACTIONS (31)
  - Psychotic disorder [None]
  - Self injurious behaviour [None]
  - Lethargy [None]
  - Morose [None]
  - Laceration [None]
  - Stab wound [None]
  - Road traffic accident [None]
  - Schizophrenia [None]
  - Fatigue [None]
  - Divorced [None]
  - Victim of crime [None]
  - Arthropod sting [None]
  - Wrong drug administered [None]
  - Hallucination, auditory [None]
  - Whipple^s disease [None]
  - Memory impairment [None]
  - Rash [None]
  - Skin exfoliation [None]
  - Manganese decreased [None]
  - Anger [None]
  - Feeling abnormal [None]
  - Swelling [None]
  - Erythema [None]
  - Negative thoughts [None]
  - Suicidal ideation [None]
  - Paranoia [None]
  - Anaemia [None]
  - Malabsorption [None]
  - Pain in extremity [None]
  - Pain in extremity [None]
  - Gait disturbance [None]
